FAERS Safety Report 11844545 (Version 1)
Quarter: 2015Q4

REPORT INFORMATION
  Report Type: Other
  Country: US (occurrence: US)
  Receive Date: 20151217
  Receipt Date: 20151217
  Transmission Date: 20160305
  Serious: Yes (Hospitalization, Other)
  Sender: FDA-Public Use
  Company Number: US-ACTELION-A-US2005-09299

PATIENT
  Age: 23 Year
  Sex: Female
  Weight: 50.34 kg

DRUGS (9)
  1. TRACLEER [Suspect]
     Active Substance: BOSENTAN
     Indication: PULMONARY ARTERIAL HYPERTENSION
     Dosage: 125 MG, BID
     Route: 048
     Dates: end: 200411
  2. TRACLEER [Suspect]
     Active Substance: BOSENTAN
     Dosage: 62.5 MG, BID
     Route: 048
     Dates: start: 200411, end: 20041124
  3. TRACLEER [Suspect]
     Active Substance: BOSENTAN
     Dosage: UNK
     Route: 048
     Dates: start: 20070727
  4. HEPARIN [Concomitant]
     Active Substance: HEPARIN SODIUM
  5. FLOLAN [Concomitant]
     Active Substance: EPOPROSTENOL SODIUM
     Dates: start: 200411
  6. PROTONIX [Concomitant]
     Active Substance: PANTOPRAZOLE SODIUM
  7. BETAMETHASONE. [Concomitant]
     Active Substance: BETAMETHASONE
  8. TRACLEER [Suspect]
     Active Substance: BOSENTAN
     Dosage: 62.5 MG, BID
     Route: 048
     Dates: start: 200208
  9. PRENATAL [Concomitant]
     Active Substance: VITAMINS

REACTIONS (12)
  - Dizziness [Unknown]
  - Condition aggravated [Unknown]
  - Disease progression [Unknown]
  - Nausea [Unknown]
  - Caesarean section [Unknown]
  - Pulmonary hypertension [Unknown]
  - Headache [Unknown]
  - Pregnancy [Unknown]
  - Premature labour [Unknown]
  - Live birth [Unknown]
  - Syncope [Recovered/Resolved]
  - Vaginal haemorrhage [Recovered/Resolved]

NARRATIVE: CASE EVENT DATE: 20041019
